FAERS Safety Report 4877441-1 (Version None)
Quarter: 2006Q1

REPORT INFORMATION
  Report Type: 
  Country: None (occurrence: None)
  Receive Date: 20060109
  Receipt Date: 20060103
  Transmission Date: 20060701
  Serious: Yes (Hospitalization)
  Sender: FDA-Public Use
  Company Number: WAES 0503GBR00214

PATIENT
  Age: 66 Year
  Sex: Male

DRUGS (22)
  1. VIOXX [Suspect]
     Indication: RHEUMATOID ARTHRITIS
     Dosage: 25 MG/DAILY/PO
     Route: 048
     Dates: start: 20040408, end: 20041001
  2. ACETAMINOPHEN (+) CODEINE PHOSPH [Concomitant]
  3. ACETAMINOPHEN (+) CODEINE PHOSPH [Concomitant]
  4. AMLODIPINE BESYLATE [Concomitant]
  5. AMLODIPINE BESYLATE [Concomitant]
  6. ASPIRIN [Concomitant]
  7. ATENOLOL [Concomitant]
  8. ATENOLOL [Concomitant]
  9. ATORVASTATIN CALCIUM [Concomitant]
  10. BENDROFLUMETHIAZIDE [Concomitant]
  11. BENDROFLUMETHIAZIDE [Concomitant]
  12. BENDROFLUMETHIAZIDE [Concomitant]
  13. CYANOCOBALAMIN [Concomitant]
  14. DIAZEPAM [Concomitant]
  15. NITROGLYCERIN [Concomitant]
  16. POTASSIUM CHLORIDE [Concomitant]
  17. POTASSIUM CHLORIDE [Concomitant]
  18. PREDNISOLONE [Concomitant]
  19. PREDNISOLONE [Concomitant]
  20. QUININE [Concomitant]
  21. SULFASALAZINE [Concomitant]
  22. TRAZODONE HCL [Concomitant]

REACTIONS (17)
  - ALCOHOL USE [None]
  - ANGINA PECTORIS [None]
  - BLOOD POTASSIUM DECREASED [None]
  - BLOOD PRESSURE SYSTOLIC INCREASED [None]
  - CARDIOMEGALY [None]
  - CHRONIC OBSTRUCTIVE PULMONARY DISEASE [None]
  - CORONARY ARTERY OCCLUSION [None]
  - EXERCISE TOLERANCE DECREASED [None]
  - HAEMATOCRIT DECREASED [None]
  - HAEMOGLOBIN DECREASED [None]
  - HYPOVENTILATION [None]
  - MEAN CELL HAEMOGLOBIN CONCENTRATION INCREASED [None]
  - MEAN CELL VOLUME INCREASED [None]
  - MYOCARDIAL ISCHAEMIA [None]
  - RED BLOOD CELL COUNT DECREASED [None]
  - VITAMIN B12 DEFICIENCY [None]
  - WHEEZING [None]
